FAERS Safety Report 14292731 (Version 4)
Quarter: 2018Q2

REPORT INFORMATION
  Report Type: Report from Study
  Country: ES (occurrence: ES)
  Receive Date: 20171215
  Receipt Date: 20180502
  Transmission Date: 20180711
  Serious: Yes (Death, Hospitalization)
  Sender: FDA-Public Use
  Company Number: ES-ROCHE-2028009

PATIENT
  Age: 63 Year
  Sex: Male
  Weight: 75 kg

DRUGS (10)
  1. ATEZOLIZUMAB. [Suspect]
     Active Substance: ATEZOLIZUMAB
     Indication: MALIGNANT URINARY TRACT NEOPLASM
     Dosage: DATE OF MOST RECENT DOSE OF STUDY DRUG PRIOR TO SAE ONSET: 11/OCT/2017
     Route: 042
     Dates: start: 20170621
  2. AUGMENTINE [Concomitant]
     Active Substance: AMOXICILLIN\CLAVULANATE POTASSIUM
     Indication: URINARY TRACT INFLAMMATION
     Route: 048
     Dates: start: 20171019, end: 20171019
  3. INNOHEP [Concomitant]
     Active Substance: TINZAPARIN SODIUM
     Route: 058
     Dates: start: 201702
  4. OMEPRAZOL [Concomitant]
     Active Substance: OMEPRAZOLE
     Indication: GASTROOESOPHAGEAL REFLUX PROPHYLAXIS
     Route: 048
     Dates: start: 201612
  5. SIMVASTATINA [Concomitant]
     Active Substance: SIMVASTATIN
     Route: 048
     Dates: start: 2014
  6. PARACETAMOL [Concomitant]
     Active Substance: ACETAMINOPHEN
     Indication: PAIN
     Route: 048
  7. SPIRIVA [Concomitant]
     Active Substance: TIOTROPIUM BROMIDE MONOHYDRATE
     Route: 048
     Dates: start: 2014
  8. ZYLORIC [Concomitant]
     Active Substance: ALLOPURINOL
     Route: 048
     Dates: start: 2007
  9. CEFUROXIME. [Concomitant]
     Active Substance: CEFUROXIME
     Indication: URINARY TRACT INFLAMMATION
     Route: 048
     Dates: start: 20171020
  10. FUROSEMIDA [Concomitant]
     Active Substance: FUROSEMIDE
     Indication: URINARY TRACT INFLAMMATION
     Route: 048
     Dates: start: 20171019, end: 20171024

REACTIONS (1)
  - Colitis [Fatal]

NARRATIVE: CASE EVENT DATE: 20171108
